FAERS Safety Report 23629859 (Version 1)
Quarter: 2024Q1

REPORT INFORMATION
  Report Type: Spontaneous
  Country: FR (occurrence: FR)
  Receive Date: 20240314
  Receipt Date: 20240314
  Transmission Date: 20240409
  Serious: Yes (Hospitalization, Other)
  Sender: FDA-Public Use
  Company Number: FR-CELLTRION INC.-2024FR006027

PATIENT

DRUGS (1)
  1. TRUXIMA [Suspect]
     Active Substance: RITUXIMAB-ABBS
     Indication: Evans syndrome
     Dosage: 1 G, EVERY 2 WEEKS
     Route: 042
     Dates: start: 20201019, end: 20201106

REACTIONS (4)
  - Cholestasis [Recovered/Resolved]
  - Hepatic cytolysis [Recovering/Resolving]
  - Hyperbilirubinaemia [Not Recovered/Not Resolved]
  - Intentional product use issue [Unknown]

NARRATIVE: CASE EVENT DATE: 20201108
